FAERS Safety Report 5478253-0 (Version None)
Quarter: 2007Q4

REPORT INFORMATION
  Report Type: 
  Country: None (occurrence: None)
  Receive Date: 20071005
  Receipt Date: 20070927
  Transmission Date: 20080405
  Serious: Yes (Disabling)
  Sender: FDA-Public Use
  Company Number: GB-BAYER-200710741BNE

PATIENT
  Age: 30 Year
  Sex: Female
  Weight: 80 kg

DRUGS (5)
  1. CIPROFLOXACIN [Suspect]
     Indication: DIARRHOEA
     Dosage: TOTAL DAILY DOSE: 1000 MG
     Route: 048
     Dates: start: 20070626, end: 20070704
  2. TINADAZOLE [Concomitant]
     Indication: DIARRHOEA
     Route: 048
     Dates: start: 20070626
  3. DOXYCYCLINE [Concomitant]
     Indication: MALARIA PROPHYLAXIS
     Route: 048
     Dates: start: 20070101
  4. PROGESTERONE IMPLANT [Concomitant]
     Indication: CONTRACEPTION
     Dates: start: 20050301
  5. LOPERAMIDE HCL [Concomitant]
     Indication: DIARRHOEA
     Route: 048
     Dates: start: 20070626

REACTIONS (10)
  - ANXIETY [None]
  - DRUG HYPERSENSITIVITY [None]
  - HAEMATOCHEZIA [None]
  - HYPOAESTHESIA [None]
  - INSOMNIA [None]
  - NEUROPATHY PERIPHERAL [None]
  - PARAESTHESIA [None]
  - PARANOIA [None]
  - PSYCHOTIC DISORDER [None]
  - THINKING ABNORMAL [None]
